FAERS Safety Report 8629556 (Version 2)
Quarter: 2013Q2

REPORT INFORMATION
  Report Type: Spontaneous
  Country: IL (occurrence: IL)
  Receive Date: 20120622
  Receipt Date: 20130507
  Transmission Date: 20140414
  Serious: Yes (Other)
  Sender: FDA-Public Use
  Company Number: IL-JNJFOC-20120606239

PATIENT
  Sex: Male
  Weight: 9.5 kg

DRUGS (5)
  1. REMICADE [Suspect]
     Indication: CROHN^S DISEASE
     Dosage: APPROXIMATELY RECEIVED 7 INFUSIONS
     Route: 042
     Dates: end: 2009
  2. REMICADE [Suspect]
     Indication: CROHN^S DISEASE
     Dosage: 3RD INFUSION
     Route: 042
     Dates: start: 2009
  3. PURINETHOL [Concomitant]
     Route: 065
  4. IMURAN [Concomitant]
     Route: 065
  5. HYDROCORTISON [Concomitant]
     Indication: PREMEDICATION
     Route: 065

REACTIONS (7)
  - Blood pressure decreased [Recovered/Resolved]
  - Antibody test abnormal [Unknown]
  - Infusion related reaction [Recovered/Resolved]
  - Dyspnoea [Recovered/Resolved]
  - Urticaria [Recovered/Resolved]
  - Nausea [Recovered/Resolved]
  - Erythema [Recovered/Resolved]
